FAERS Safety Report 4499777-9 (Version None)
Quarter: 2004Q4

REPORT INFORMATION
  Report Type: 
  Country: None (occurrence: None)
  Receive Date: 20041110
  Receipt Date: 20041110
  Transmission Date: 20050328
  Serious: No
  Sender: FDA-Public Use
  Company Number: None

PATIENT
  Age: 54 Year
  Sex: Male

DRUGS (2)
  1. ENALAPRIL [Suspect]
     Indication: DIABETES MELLITUS
     Dosage: 40 MG DAILY [ MANY YEARS]
  2. ENALAPRIL [Suspect]
     Indication: HYPERTENSION
     Dosage: 40 MG DAILY [ MANY YEARS]

REACTIONS (2)
  - HYPERSENSITIVITY [None]
  - SWELLING FACE [None]
